FAERS Safety Report 25172121 (Version 2)
Quarter: 2025Q2

REPORT INFORMATION
  Report Type: Spontaneous
  Country: FR (occurrence: FR)
  Receive Date: 20250408
  Receipt Date: 20250425
  Transmission Date: 20250716
  Serious: Yes (Hospitalization, Other)
  Sender: CIPLA
  Company Number: FR-AFSSAPS-NY2025000107

PATIENT

DRUGS (7)
  1. RIVAROXABAN [Interacting]
     Active Substance: RIVAROXABAN
     Indication: Arrhythmia
     Dosage: 1 DOSAGE FORM, QD (1 AT NOON) (FILM-COATED TABLET)
     Route: 048
     Dates: start: 20240823, end: 202501
  2. RIVAROXABAN [Interacting]
     Active Substance: RIVAROXABAN
     Dosage: 1 DOSAGE FORM, QD (1 AT NOON) (FILM-COATED TABLET)
     Route: 048
     Dates: start: 20250117, end: 20250117
  3. ASPIRIN [Interacting]
     Active Substance: ASPIRIN
     Indication: Cardiovascular event prophylaxis
     Dosage: 1 DOSAGE FORM, QD (1 AT NOON)
     Route: 048
     Dates: start: 20190101
  4. AMIODARONE [Concomitant]
     Active Substance: AMIODARONE
     Indication: Arrhythmia
     Route: 048
     Dates: start: 202408
  5. OMEPRAZOLE [Concomitant]
     Active Substance: OMEPRAZOLE
     Indication: Gastric ulcer
     Route: 048
  6. ALLOPURINOL [Concomitant]
     Active Substance: ALLOPURINOL
     Indication: Hyperuricaemia
     Route: 048
  7. EZETIMIBE [Concomitant]
     Active Substance: EZETIMIBE
     Indication: Dyslipidaemia
     Route: 048

REACTIONS (2)
  - Drug interaction [Recovered/Resolved]
  - Melaena [Recovered/Resolved]

NARRATIVE: CASE EVENT DATE: 20240823
